FAERS Safety Report 6180825-5 (Version None)
Quarter: 2009Q2

REPORT INFORMATION
  Report Type: 
  Country: None (occurrence: None)
  Receive Date: 20090504
  Receipt Date: 20090504
  Transmission Date: 20091009
  Serious: No
  Sender: FDA-Public Use
  Company Number: None

PATIENT
  Age: 39 Year
  Sex: Female
  Weight: 79.3795 kg

DRUGS (1)
  1. MIRENA [Suspect]
     Indication: BLOOD PRESSURE
     Dates: start: 20090325, end: 20090502

REACTIONS (9)
  - ACNE [None]
  - DRY SKIN [None]
  - EYELID OEDEMA [None]
  - HYPERSENSITIVITY [None]
  - IMPAIRED HEALING [None]
  - PRURITUS GENERALISED [None]
  - RASH MACULO-PAPULAR [None]
  - SCRATCH [None]
  - STRESS [None]
